FAERS Safety Report 16363943 (Version 1)
Quarter: 2019Q2

REPORT INFORMATION
  Report Type: Spontaneous
  Country: DE (occurrence: DE)
  Receive Date: 20190528
  Receipt Date: 20190528
  Transmission Date: 20190711
  Serious: Yes (Other)
  Sender: FDA-Public Use
  Company Number: DE-B.I. PHARMACEUTICALS,INC./RIDGEFIELD-2019-BI-023213

PATIENT
  Age: 71 Year
  Sex: Male

DRUGS (2)
  1. GILOTRIF [Suspect]
     Active Substance: AFATINIB
     Route: 065
     Dates: start: 20140524
  2. GILOTRIF [Suspect]
     Active Substance: AFATINIB
     Indication: NON-SMALL CELL LUNG CANCER
     Route: 065
     Dates: start: 20140326

REACTIONS (5)
  - Pulmonary mass [Unknown]
  - Rash [Recovering/Resolving]
  - Neoplasm progression [Unknown]
  - Paronychia [Recovering/Resolving]
  - Otitis externa [Unknown]

NARRATIVE: CASE EVENT DATE: 201602
